FAERS Safety Report 6793273-1 (Version None)
Quarter: 2010Q2

REPORT INFORMATION
  Report Type: 
  Country: None (occurrence: None)
  Receive Date: 20100624
  Receipt Date: 20091009
  Transmission Date: 20101027
  Serious: No
  Sender: FDA-Public Use
  Company Number: US-MYLANLABS-2009S1017861

PATIENT
  Age: 16 Year
  Sex: Female

DRUGS (3)
  1. CLOZAPINE [Suspect]
     Route: 048
     Dates: start: 20090212, end: 20091007
  2. PRISTIQ [Concomitant]
  3. LOESTRIN FE 1/20 [Concomitant]

REACTIONS (1)
  - GRANULOCYTOPENIA [None]
